FAERS Safety Report 7559273-9 (Version None)
Quarter: 2011Q2

REPORT INFORMATION
  Report Type: 
  Country: None (occurrence: None)
  Receive Date: 20110613
  Receipt Date: 20110527
  Transmission Date: 20111010
  Serious: Yes (Other)
  Sender: FDA-Public Use
  Company Number: JPI-P-015272

PATIENT
  Age: 54 Year
  Sex: Female

DRUGS (2)
  1. XYREM [Suspect]
     Indication: NARCOLEPSY
     Dosage: 9 GM (4.5 GM, 2 IN 1 D), ORAL
     Route: 048
     Dates: start: 20081010
  2. XYREM [Suspect]
     Indication: NARCOLEPSY
     Dosage: 9 GM (4.5 GM, 2 IN 1 D), ORAL
     Route: 048
     Dates: start: 20110125

REACTIONS (12)
  - SOMNOLENCE [None]
  - TREMOR [None]
  - DYSPHONIA [None]
  - CONDITION AGGRAVATED [None]
  - DECREASED APPETITE [None]
  - DYSKINESIA [None]
  - BREAST CANCER FEMALE [None]
  - TINNITUS [None]
  - HEADACHE [None]
  - BACK PAIN [None]
  - ENURESIS [None]
  - PAIN IN EXTREMITY [None]
